FAERS Safety Report 4279640-9 (Version None)
Quarter: 2004Q1

REPORT INFORMATION
  Report Type: 
  Country: None (occurrence: None)
  Receive Date: 20040126
  Receipt Date: 20040126
  Transmission Date: 20041129
  Serious: Yes (Hospitalization)
  Sender: FDA-Public Use
  Company Number: None

PATIENT
  Age: 57 Year
  Sex: Male
  Weight: 95 kg

DRUGS (1)
  1. CLINDAMYCIN [Suspect]
     Indication: ULCER
     Dosage: 300 MG QID

REACTIONS (1)
  - ERYTHEMA MULTIFORME [None]
